FAERS Safety Report 17547572 (Version 2)
Quarter: 2020Q3

REPORT INFORMATION
  Report Type: Spontaneous
  Country: US (occurrence: US)
  Receive Date: 20200317
  Receipt Date: 20200717
  Transmission Date: 20201102
  Serious: No
  Sender: FDA-Public Use
  Company Number: US-LUPIN PHARMACEUTICALS INC.-2020-01219

PATIENT
  Sex: Male
  Weight: 87 kg

DRUGS (3)
  1. GAVILYTE ? C [Suspect]
     Active Substance: POLYETHYLENE GLYCOL 3350\POTASSIUM CHLORIDE\SODIUM BICARBONATE\SODIUM CHLORIDE\SODIUM SULFATE ANHYDROUS
     Indication: CONSTIPATION
     Dosage: UNK
     Route: 048
     Dates: start: 20200225, end: 20200225
  2. LIPITOR [Concomitant]
     Active Substance: ATORVASTATIN CALCIUM
     Indication: BLOOD CHOLESTEROL ABNORMAL
     Dosage: UNK
     Route: 065
  3. LISINOPRIL. [Concomitant]
     Active Substance: LISINOPRIL
     Indication: HYPERTENSION
     Dosage: UNK
     Route: 065

REACTIONS (3)
  - Off label use [Unknown]
  - Abdominal pain upper [Recovered/Resolved]
  - Therapeutic product effect delayed [Recovered/Resolved]

NARRATIVE: CASE EVENT DATE: 20200225
